FAERS Safety Report 7341581-8 (Version None)
Quarter: 2011Q1

REPORT INFORMATION
  Report Type: 
  Country: None (occurrence: None)
  Receive Date: 20110309
  Receipt Date: 20110304
  Transmission Date: 20110831
  Serious: Yes (Death, Hospitalization, Other)
  Sender: FDA-Public Use
  Company Number: GR-PFIZER INC-2010172494

PATIENT
  Age: 60 Year
  Sex: Male
  Weight: 70 kg

DRUGS (2)
  1. T4 [Concomitant]
     Indication: HYPOTHYROIDISM
     Route: 048
  2. SUTENT [Suspect]
     Indication: RENAL CELL CARCINOMA
     Dosage: 50MG OD FOR 4 WEEKS, THEN DISCONTINUATION FOR 2 WEEKS
     Route: 048
     Dates: start: 20091027, end: 20101210

REACTIONS (11)
  - RHABDOMYOLYSIS [None]
  - ORGAN FAILURE [None]
  - FATIGUE [None]
  - DISEASE PROGRESSION [None]
  - RENAL FAILURE ACUTE [None]
  - REGURGITATION [None]
  - HYPOGLYCAEMIA [None]
  - ANURIA [None]
  - RENAL CANCER METASTATIC [None]
  - HEPATIC FAILURE [None]
  - ALTERED STATE OF CONSCIOUSNESS [None]
